FAERS Safety Report 25204036 (Version 1)
Quarter: 2025Q2

REPORT INFORMATION
  Report Type: Report from Study
  Country: US (occurrence: US)
  Receive Date: 20250416
  Receipt Date: 20250416
  Transmission Date: 20250717
  Serious: Yes (Other)
  Sender: TAKEDA
  Company Number: US-TAKEDA-US201916694

PATIENT
  Sex: Female
  Weight: 57.59 kg

DRUGS (13)
  1. ICATIBANT [Suspect]
     Active Substance: ICATIBANT ACETATE
     Indication: Immune system disorder
  2. ICATIBANT [Suspect]
     Active Substance: ICATIBANT ACETATE
  3. TAKHZYRO [Suspect]
     Active Substance: LANADELUMAB-FLYO
     Indication: Hereditary angioedema
     Dosage: 300 MILLIGRAM, Q2WEEKS
     Dates: start: 20200414
  4. TAKHZYRO [Suspect]
     Active Substance: LANADELUMAB-FLYO
     Indication: Immune system disorder
     Dosage: 300 MILLIGRAM, Q2WEEKS
     Dates: start: 20200415
  5. TAKHZYRO [Suspect]
     Active Substance: LANADELUMAB-FLYO
  6. EPINEPHRINE [Concomitant]
     Active Substance: EPINEPHRINE
  7. HAEGARDA [Concomitant]
     Active Substance: HUMAN C1-ESTERASE INHIBITOR
  8. HEPARIN [Concomitant]
     Active Substance: HEPARIN SODIUM
  9. SODIUM CHLORIDE [Concomitant]
     Active Substance: SODIUM CHLORIDE
  10. BERINERT [Concomitant]
     Active Substance: HUMAN C1-ESTERASE INHIBITOR
  11. RUCONEST [Concomitant]
     Active Substance: CONESTAT ALFA
     Indication: Product used for unknown indication
  12. VITAMINS [Concomitant]
     Active Substance: VITAMINS
  13. DIPHENHYDRAMINE [Concomitant]
     Active Substance: DIPHENHYDRAMINE

REACTIONS (8)
  - Lower respiratory tract infection [Unknown]
  - COVID-19 [Unknown]
  - Influenza [Unknown]
  - Seasonal allergy [Not Recovered/Not Resolved]
  - Insurance issue [Unknown]
  - Product use issue [Unknown]
  - Administration site haemorrhage [Unknown]
  - Administration site bruise [Unknown]
